FAERS Safety Report 25148774 (Version 1)
Quarter: 2025Q2

REPORT INFORMATION
  Report Type: Spontaneous
  Country: US (occurrence: US)
  Receive Date: 20250402
  Receipt Date: 20250402
  Transmission Date: 20250716
  Serious: Yes (Hospitalization)
  Sender: NATCO PHARMA
  Company Number: US-NATCOUSA-2025-NATCOUSA-000274

PATIENT
  Age: 54 Year
  Sex: Female

DRUGS (1)
  1. NITROGLYCERIN [Suspect]
     Active Substance: NITROGLYCERIN
     Indication: Chest pain
     Route: 065

REACTIONS (1)
  - Drug ineffective [Unknown]
